FAERS Safety Report 5873784-3 (Version None)
Quarter: 2008Q3

REPORT INFORMATION
  Report Type: 
  Country: None (occurrence: None)
  Receive Date: 20080903
  Receipt Date: 20080903
  Transmission Date: 20090109
  Serious: No
  Sender: FDA-Public Use
  Company Number: None

PATIENT
  Sex: Male
  Weight: 92 kg

DRUGS (3)
  1. PENTOSTATIN [Suspect]
     Dosage: 8.6 MG
  2. RITUXIMAB [Suspect]
     Dosage: 1700 MG
  3. CYCLOPHOSPHAMIDE [Suspect]
     Dosage: 1300 MG

REACTIONS (3)
  - ASTHENIA [None]
  - FATIGUE [None]
  - NEUTROPHIL COUNT DECREASED [None]
